FAERS Safety Report 22311196 (Version 1)
Quarter: 2023Q2

REPORT INFORMATION
  Report Type: Spontaneous
  Country: US (occurrence: None)
  Receive Date: 20230510
  Receipt Date: 20230510
  Transmission Date: 20230722
  Serious: Yes (Hospitalization)
  Sender: FDA-Public Use
  Company Number: None

PATIENT
  Age: 78 Year
  Sex: Male

DRUGS (1)
  1. SUNITINIB [Suspect]
     Active Substance: SUNITINIB
     Dosage: FREQUENCY : DAILY;?
     Route: 048
     Dates: end: 20230424

REACTIONS (9)
  - Pulmonary embolism [None]
  - White blood cell count decreased [None]
  - Red blood cell count decreased [None]
  - Haemoglobin decreased [None]
  - Asthenia [None]
  - Dyspnoea [None]
  - Diarrhoea [None]
  - Ageusia [None]
  - Therapy cessation [None]

NARRATIVE: CASE EVENT DATE: 20230510
